FAERS Safety Report 5788979-7 (Version None)
Quarter: 2008Q2

REPORT INFORMATION
  Report Type: 
  Country: None (occurrence: None)
  Receive Date: 20080625
  Receipt Date: 20080625
  Transmission Date: 20081010
  Serious: Yes (Hospitalization)
  Sender: FDA-Public Use
  Company Number: None

PATIENT
  Age: 71 Year
  Sex: Female

DRUGS (6)
  1. TRAZODONE HCL [Suspect]
     Indication: INSOMNIA
     Dosage: ORAL;25.0 MILLIGRAM
     Route: 048
     Dates: start: 20080319, end: 20080412
  2. TRAZODONE HCL [Suspect]
     Dosage: ;;0;0
  3. TOPROL-XL [Suspect]
  4. SIMVASTATIN [Concomitant]
  5. KEPPRA [Concomitant]
  6. COLACE [Concomitant]

REACTIONS (2)
  - ELECTROCARDIOGRAM QT PROLONGED [None]
  - SYNCOPE [None]
